FAERS Safety Report 6061367-4 (Version None)
Quarter: 2009Q1

REPORT INFORMATION
  Report Type: 
  Country: None (occurrence: None)
  Receive Date: 20090129
  Receipt Date: 20090129
  Transmission Date: 20090719
  Serious: Yes (Hospitalization)
  Sender: FDA-Public Use
  Company Number: None

PATIENT
  Age: 34 Year
  Sex: Female
  Weight: 58 kg

DRUGS (4)
  1. TRUVADA [Suspect]
     Indication: HIV INFECTION
     Dosage: 500 MG OD PO
     Route: 048
     Dates: start: 20070524, end: 20081006
  2. LOPINAVIR AND RITONAVIR [Suspect]
     Indication: HIV INFECTION
     Dosage: 500 MG BD PO
     Route: 048
     Dates: start: 20071101
  3. RETROVIR [Suspect]
     Indication: HIV INFECTION
     Dosage: 300 MG BD PO
     Route: 048
     Dates: start: 20081006, end: 20081210
  4. EMTRIVA [Suspect]
     Indication: HIV INFECTION
     Dosage: 200 MG OD PO
     Route: 048
     Dates: start: 20081006, end: 20081210

REACTIONS (10)
  - CERVIX HAEMORRHAGE UTERINE [None]
  - DRUG EXPOSURE DURING PREGNANCY [None]
  - FAILED INDUCTION OF LABOUR [None]
  - GASTROENTERITIS [None]
  - HEADACHE [None]
  - MALARIA [None]
  - PREGNANCY [None]
  - PREMATURE RUPTURE OF MEMBRANES [None]
  - VAGINAL DISCHARGE [None]
  - VAGINAL HAEMORRHAGE [None]
